FAERS Safety Report 16250621 (Version 1)
Quarter: 2019Q2

REPORT INFORMATION
  Report Type: Spontaneous
  Country: GB (occurrence: GB)
  Receive Date: 20190429
  Receipt Date: 20190429
  Transmission Date: 20190711
  Serious: Yes (Hospitalization, Other)
  Sender: FDA-Public Use
  Company Number: GB-TORRENT-00001824

PATIENT
  Age: 70 Year
  Sex: Female
  Weight: 72 kg

DRUGS (2)
  1. QUETIAPINE. [Suspect]
     Active Substance: QUETIAPINE
     Indication: MAJOR DEPRESSION
     Route: 048
     Dates: start: 20120518, end: 20120527
  2. AMISULPRIDE [Concomitant]
     Active Substance: AMISULPRIDE
     Indication: MAJOR DEPRESSION
     Route: 048
     Dates: start: 20120419, end: 20120629

REACTIONS (3)
  - Rash generalised [Recovered/Resolved]
  - Conjunctival disorder [Recovered/Resolved]
  - Rash maculo-papular [Recovered/Resolved]

NARRATIVE: CASE EVENT DATE: 20120527
